FAERS Safety Report 5676881-0 (Version None)
Quarter: 2008Q1

REPORT INFORMATION
  Report Type: 
  Country: None (occurrence: None)
  Receive Date: 20080324
  Receipt Date: 20080317
  Transmission Date: 20080703
  Serious: Yes (Hospitalization, Disabling)
  Sender: FDA-Public Use
  Company Number: US-MERCK-0409USA01947

PATIENT
  Age: 78 Year
  Sex: Female

DRUGS (27)
  1. ZOCOR [Suspect]
     Indication: BLOOD CHOLESTEROL INCREASED
     Route: 048
  2. ZOCOR [Suspect]
     Route: 048
     Dates: start: 20030626, end: 20040921
  3. ZETIA [Suspect]
     Route: 065
  4. LOTENSIN [Concomitant]
     Route: 048
  5. ZANTAC [Concomitant]
     Route: 048
  6. LASIX [Concomitant]
     Route: 048
  7. LASIX [Concomitant]
     Route: 048
     Dates: start: 20030923
  8. POTASSIUM CHLORIDE [Concomitant]
     Route: 048
  9. CALCIUM (UNSPECIFIED) [Concomitant]
     Route: 065
  10. METAMUCIL [Concomitant]
     Route: 065
  11. SENOKOT [Concomitant]
     Route: 065
  12. GLUCOTROL [Concomitant]
     Route: 065
  13. GLUCOTROL [Concomitant]
     Route: 065
  14. DILTIAZEM HYDROCHLORIDE [Concomitant]
     Route: 065
     Dates: start: 20030327
  15. DILTIAZEM HYDROCHLORIDE [Concomitant]
     Route: 065
     Dates: start: 20030923
  16. ATENOLOL [Concomitant]
     Route: 065
  17. ATENOLOL [Concomitant]
     Route: 065
     Dates: start: 20030301
  18. PANCREASE (PANCRELIPASE) [Concomitant]
     Route: 065
     Dates: start: 20030301, end: 20030624
  19. FLOVENT [Concomitant]
     Route: 065
  20. ATROVENT [Concomitant]
  21. DARVOCET-N 100 [Concomitant]
     Route: 065
  22. OXYCONTIN [Concomitant]
     Route: 065
  23. LIBRAX [Concomitant]
     Route: 065
     Dates: start: 20030301, end: 20030923
  24. BENTYL [Concomitant]
     Route: 065
     Dates: start: 20030923
  25. VIOXX [Concomitant]
     Route: 065
  26. DICLOFENAC [Concomitant]
     Route: 065
  27. ASPIRIN [Concomitant]
     Route: 065
     Dates: start: 20030301

REACTIONS (32)
  - ABDOMINAL DISTENSION [None]
  - ABDOMINAL PAIN [None]
  - ABDOMINAL PAIN LOWER [None]
  - ASTHENIA [None]
  - ASTHMA [None]
  - BRONCHITIS [None]
  - CONSTIPATION [None]
  - CYSTITIS [None]
  - DIABETIC NEUROPATHY [None]
  - DRUG ABUSE [None]
  - DRUG HYPERSENSITIVITY [None]
  - DYSPEPSIA [None]
  - DYSURIA [None]
  - GALLBLADDER DISORDER [None]
  - GASTROINTESTINAL DISORDER [None]
  - INCONTINENCE [None]
  - INTERVERTEBRAL DISC DEGENERATION [None]
  - IRRITABLE BOWEL SYNDROME [None]
  - LIVER FUNCTION TEST ABNORMAL [None]
  - MUSCLE DISORDER [None]
  - MUSCLE INJURY [None]
  - OSTEOARTHRITIS [None]
  - OSTEOPOROSIS [None]
  - PAIN [None]
  - PAIN IN EXTREMITY [None]
  - RESTLESS LEGS SYNDROME [None]
  - SPINAL COLUMN STENOSIS [None]
  - SPONDYLITIS [None]
  - TENDONITIS [None]
  - URINARY TRACT INFECTION [None]
  - VIRAL RHINITIS [None]
  - VULVOVAGINAL DISCOMFORT [None]
